FAERS Safety Report 22160924 (Version 1)
Quarter: 2023Q1

REPORT INFORMATION
  Report Type: Spontaneous
  Country: US (occurrence: None)
  Receive Date: 20230330
  Receipt Date: 20230330
  Transmission Date: 20230417
  Serious: No
  Sender: FDA-Public Use
  Company Number: None

PATIENT
  Age: 73 Year
  Sex: Female
  Weight: 72.12 kg

DRUGS (12)
  1. LAPATINIB [Suspect]
     Active Substance: LAPATINIB
     Indication: Breast cancer female
     Dosage: FREQUENCY : DAILY;?
     Route: 048
  2. ALEVE [Concomitant]
  3. ATOMASIN [Concomitant]
  4. CAPECITABINE [Concomitant]
  5. CETIRIZINE [Concomitant]
  6. CROMOLYN [Concomitant]
  7. EXEMESTANE [Concomitant]
  8. FASLODEX [Concomitant]
  9. FLONASE [Concomitant]
  10. IMODIUM A-D [Concomitant]
  11. METOPROLOL [Concomitant]
  12. TAMOXIFEN [Concomitant]
     Active Substance: TAMOXIFEN

REACTIONS (2)
  - Fracture [None]
  - Bone disorder [None]
